FAERS Safety Report 25342231 (Version 6)
Quarter: 2025Q4

REPORT INFORMATION
  Report Type: Spontaneous
  Country: US (occurrence: US)
  Receive Date: 20250521
  Receipt Date: 20251028
  Transmission Date: 20260117
  Serious: No
  Sender: CALLIDITAS THERAPEUTICS AB
  Company Number: US-Calliditas-2025CAL01250

PATIENT
  Age: 48 Year
  Sex: Female

DRUGS (3)
  1. TARPEYO [Suspect]
     Active Substance: BUDESONIDE
     Indication: IgA nephropathy
     Route: 048
     Dates: start: 20250213
  2. LISINOPRIL [Concomitant]
     Active Substance: LISINOPRIL
  3. SIMVASTATIN [Concomitant]
     Active Substance: SIMVASTATIN

REACTIONS (7)
  - Headache [Recovering/Resolving]
  - Urine protein/creatinine ratio increased [Unknown]
  - Urine albumin/creatinine ratio increased [Unknown]
  - Pruritus [Unknown]
  - Arthralgia [Not Recovered/Not Resolved]
  - Weight decreased [Recovered/Resolved]
  - Increased tendency to bruise [Recovered/Resolved]

NARRATIVE: CASE EVENT DATE: 20250801
